FAERS Safety Report 15470377 (Version 3)
Quarter: 2018Q4

REPORT INFORMATION
  Report Type: Spontaneous
  Country: FR (occurrence: FR)
  Receive Date: 20181005
  Receipt Date: 20181019
  Transmission Date: 20190205
  Serious: Yes (Hospitalization, Other)
  Sender: FDA-Public Use
  Company Number: FR-SA-2018SA274687

PATIENT
  Age: 90 Year
  Sex: Male
  Weight: 59 kg

DRUGS (5)
  1. DUPIXENT [Suspect]
     Active Substance: DUPILUMAB
     Dosage: 300 MG, QOW
     Route: 058
     Dates: start: 20181005
  2. DERMOVAL [CLOBETASOL PROPIONATE] [Concomitant]
     Indication: DERMATITIS ATOPIC
     Dosage: 3 TUBES, QD
     Route: 061
     Dates: start: 20181002
  3. COLD CREAM NATUREL [Concomitant]
     Indication: DERMATITIS ATOPIC
     Dosage: UNK
     Route: 061
     Dates: start: 20180928
  4. DUPIXENT [Suspect]
     Active Substance: DUPILUMAB
     Indication: DERMATITIS ATOPIC
     Dosage: 600 MG, 1X
     Route: 058
     Dates: start: 20180920, end: 20180920
  5. POLARAMINE [Concomitant]
     Active Substance: DEXCHLORPHENIRAMINE MALEATE
     Indication: PRURITUS
     Dosage: 5 MG, Q8H
     Route: 042
     Dates: start: 20180928, end: 20181001

REACTIONS (4)
  - Rash pruritic [Recovering/Resolving]
  - Dermatitis atopic [Recovering/Resolving]
  - Oedema [Recovering/Resolving]
  - Neurodermatitis [Recovered/Resolved]

NARRATIVE: CASE EVENT DATE: 20180920
